FAERS Safety Report 7242116-0 (Version None)
Quarter: 2011Q1

REPORT INFORMATION
  Report Type: 
  Country: None (occurrence: None)
  Receive Date: 20110118
  Receipt Date: 20110103
  Transmission Date: 20110831
  Serious: Yes (Other)
  Sender: FDA-Public Use
  Company Number: AUR-APL-2010-03130

PATIENT
  Age: 78 Year
  Sex: Male

DRUGS (5)
  1. METOPROLOL TARTRATE [Suspect]
  2. CLARITIN [Suspect]
     Indication: SINUSITIS
  3. LORAZEPAM [Suspect]
     Indication: ANXIETY
  4. TEMAZEPAM [Suspect]
     Indication: SLEEP DISORDER
  5. OMEPRAZOLE [Suspect]

REACTIONS (4)
  - RHEUMATOID ARTHRITIS [None]
  - VASCULAR GRAFT [None]
  - GOUT [None]
  - CEREBROVASCULAR ACCIDENT [None]
